FAERS Safety Report 6021783-3 (Version None)
Quarter: 2008Q4

REPORT INFORMATION
  Report Type: 
  Country: None (occurrence: None)
  Receive Date: 20081229
  Receipt Date: 20081222
  Transmission Date: 20090506
  Serious: Yes (Hospitalization)
  Sender: FDA-Public Use
  Company Number: US-AVENTIS-200818598US

PATIENT
  Sex: Female

DRUGS (18)
  1. LANTUS [Suspect]
     Indication: DIABETES MELLITUS
     Dosage: DOSE: 30 VIA VIAL
     Route: 058
     Dates: start: 20050101, end: 20080101
  2. PROGRAF [Concomitant]
     Dosage: DOSE: UNK
  3. MYFORTIC [Concomitant]
     Dosage: DOSE: UNK
  4. PREDNISONE [Concomitant]
     Dosage: DOSE: UNK
  5. BACTRIM [Concomitant]
     Dosage: DOSE: UNK
  6. CALCIUM [Concomitant]
     Dosage: DOSE: UNK
  7. VIT D [Concomitant]
     Dosage: DOSE: UNK
  8. SINGULAIR [Concomitant]
     Dosage: DOSE: UNK
  9. ACETAMINOPHEN AND HYDROCODONE BITARTRATE [Concomitant]
     Dosage: DOSE: UNK
  10. LIPITOR [Concomitant]
     Dosage: DOSE: UNK
  11. PROTONIX [Concomitant]
     Dosage: DOSE: UNK
  12. VITAMIN CAP [Concomitant]
     Dosage: DOSE: UNK
  13. AMBIEN [Concomitant]
     Dosage: DOSE: UNK
  14. OSTELIN                            /00107901/ [Concomitant]
     Dosage: DOSE: UNK
  15. ADVAIR DISKUS 250/50 [Concomitant]
     Dosage: DOSE: UNK
  16. NASAL PREPARATIONS [Concomitant]
     Dosage: DOSE: UNK
  17. NYSTATIN [Concomitant]
     Dosage: DOSE: UNK
  18. SLO-MAG [Concomitant]
     Dosage: DOSE: UNK

REACTIONS (1)
  - RENAL TRANSPLANT [None]
